FAERS Safety Report 4726363-5 (Version None)
Quarter: 2005Q3

REPORT INFORMATION
  Report Type: 
  Country: None (occurrence: None)
  Receive Date: 20050725
  Receipt Date: 20050711
  Transmission Date: 20060218
  Serious: Yes (Life-Threatening, Hospitalization)
  Sender: FDA-Public Use
  Company Number: 2005095236

PATIENT
  Age: 78 Year
  Sex: Female
  Weight: 56.9 kg

DRUGS (6)
  1. AZULFIDINE EN-TABS [Suspect]
     Indication: RHEUMATOID ARTHRITIS
     Dosage: 1000 MG, ORAL
     Route: 048
     Dates: start: 20041210, end: 20050610
  2. ETODOLAC [Suspect]
     Indication: RHEUMATOID ARTHRITIS
     Dosage: 400 MG, ORAL
     Route: 048
     Dates: start: 20050419, end: 20050610
  3. PREDNISOLONE [Concomitant]
  4. FAMOTIDINE [Concomitant]
  5. TICLOPIDINE HCL [Concomitant]
  6. ALFA (ALFACALCIDOL) [Concomitant]

REACTIONS (5)
  - ADVERSE EVENT [None]
  - BILIARY TRACT DISORDER [None]
  - BLOOD ALKALINE PHOSPHATASE INCREASED [None]
  - BLOOD BILIRUBIN INCREASED [None]
  - LIVER DISORDER [None]
